FAERS Safety Report 21291971 (Version 3)
Quarter: 2025Q1

REPORT INFORMATION
  Report Type: Report from Study
  Country: AU (occurrence: AU)
  Receive Date: 20220904
  Receipt Date: 20250219
  Transmission Date: 20250409
  Serious: Yes (Disabling)
  Sender: ROCHE
  Company Number: AU-ROCHE-3170928

PATIENT
  Age: 65 Year
  Sex: Male

DRUGS (5)
  1. OCREVUS [Suspect]
     Active Substance: OCRELIZUMAB
     Indication: Multiple sclerosis
     Route: 040
     Dates: start: 20230228, end: 20230228
  2. OCREVUS [Suspect]
     Active Substance: OCRELIZUMAB
     Route: 040
  3. OCREVUS [Suspect]
     Active Substance: OCRELIZUMAB
     Route: 040
  4. OCREVUS [Suspect]
     Active Substance: OCRELIZUMAB
     Route: 040
     Dates: start: 2020
  5. FOSAMAX PLUS D [Concomitant]
     Active Substance: ALENDRONATE SODIUM\CHOLECALCIFEROL
     Indication: Osteoporosis
     Dosage: 70 MG/140MCG
     Route: 048

REACTIONS (4)
  - COVID-19 [Recovered/Resolved]
  - Gait disturbance [Recovering/Resolving]
  - COVID-19 [Unknown]
  - Multiple sclerosis relapse [Unknown]

NARRATIVE: CASE EVENT DATE: 20250211
